FAERS Safety Report 8687787 (Version 2)
Quarter: 2012Q4

REPORT INFORMATION
  Report Type: 
  Country: US (occurrence: US)
  Receive Date: 20120727
  Receipt Date: 20121116
  Transmission Date: 20130627
  Serious: Yes (Hospitalization)
  Sender: FDA-Public Use
  Company Number: US-GENZYME-POMP-1002333

PATIENT
  Age: 67 Year
  Sex: Female
  Weight: 75 kg

DRUGS (8)
  1. LUMIZYME [Suspect]
     Indication: GLYCOGEN STORAGE DISEASE TYPE II
     Dosage: 20 mg/kg, q2w
     Route: 042
     Dates: start: 20100804
  2. CELEBREX [Concomitant]
     Indication: PAIN
     Dosage: 200 mg, bid
     Route: 065
  3. FUROSEMIDE [Concomitant]
     Indication: HYPERTENSION
     Dosage: 4 mg, qd
     Route: 065
  4. WELLBUTRIN [Concomitant]
     Indication: DEPRESSION
     Dosage: 150 mg, bid
     Route: 065
  5. TRAZODONE [Concomitant]
     Indication: SLEEP DISORDER
     Dosage: 150 mg, qd
     Route: 065
  6. SINGULAIR [Concomitant]
     Indication: OBSTRUCTIVE AIRWAYS DISORDER
     Dosage: 2 puffs qd
     Route: 055
  7. NEXIUM [Concomitant]
     Indication: GASTROOESOPHAGEAL REFLUX DISEASE
     Dosage: 1 UNK, qd
     Route: 065
  8. LYRICA [Concomitant]
     Indication: FIBROMYALGIA
     Dosage: 75 mg, UNK
     Route: 065

REACTIONS (2)
  - Spinal compression fracture [Recovered/Resolved with Sequelae]
  - Fall [Recovered/Resolved with Sequelae]
